FAERS Safety Report 6551398-X (Version None)
Quarter: 2010Q1

REPORT INFORMATION
  Report Type: 
  Country: None (occurrence: None)
  Receive Date: 20100120
  Receipt Date: 20100115
  Transmission Date: 20100710
  Serious: Yes (Hospitalization)
  Sender: FDA-Public Use
  Company Number: SPV1-2009-01973

PATIENT
  Age: 75 Year
  Sex: Male

DRUGS (15)
  1. FOSRENOL [Suspect]
     Dosage: 750 MG, 3X/DAY:TID, ORAL
     Route: 048
     Dates: start: 20080101
  2. RENAGEL [Concomitant]
  3. CALCITUGG (CALCIUM CARBONATE) [Concomitant]
  4. SODIUM BICARBONATE IN PLASTIC CONTAINER [Concomitant]
  5. VENOFER [Concomitant]
  6. BETOLVIDON (CYANOCOBALAMIN) [Concomitant]
  7. FOLACIN (FOLIC ACID) [Concomitant]
  8. ARANESP [Concomitant]
  9. FUROSEMIDE [Concomitant]
  10. SIMVASTATIN ACTAVIS (SIMVASTATIN) [Concomitant]
  11. LEVOTHYROXINE SODIUM [Concomitant]
  12. FELODIPIN ACTAVIS (FELODIPINE) [Concomitant]
  13. INOLAXOL (STERCULIA URENS) [Concomitant]
  14. ACETYLSALICYLIC ACID SRT [Concomitant]
  15. LOPERAMID (LOPERAMIDE HYDROCHLORIDE) [Concomitant]

REACTIONS (9)
  - ABDOMINAL PAIN [None]
  - BILIARY TRACT DISORDER [None]
  - CHILLS [None]
  - CHOLELITHIASIS [None]
  - CONSTIPATION [None]
  - DIZZINESS [None]
  - HEARING IMPAIRED [None]
  - SYNCOPE [None]
  - VERTIGO [None]
